FAERS Safety Report 6748631-8 (Version None)
Quarter: 2010Q2

REPORT INFORMATION
  Report Type: 
  Country: None (occurrence: None)
  Receive Date: 20100527
  Receipt Date: 20100527
  Transmission Date: 20101027
  Serious: No
  Sender: FDA-Public Use
  Company Number: None

PATIENT
  Age: 71 Year
  Sex: Female
  Weight: 159.2126 kg

DRUGS (2)
  1. VENLAFAXINE HCL [Suspect]
     Indication: ANXIETY
     Dosage: TABS TWO DAILY ORAL
     Route: 048
     Dates: start: 20100413, end: 20100419
  2. VENLAFAXINE HCL [Suspect]
     Indication: MAJOR DEPRESSION
     Dosage: TABS TWO DAILY ORAL
     Route: 048
     Dates: start: 20100413, end: 20100419

REACTIONS (5)
  - DIZZINESS [None]
  - HEARING IMPAIRED [None]
  - HYPERHIDROSIS [None]
  - INITIAL INSOMNIA [None]
  - VISION BLURRED [None]
